FAERS Safety Report 18948706 (Version 1)
Quarter: 2021Q1

REPORT INFORMATION
  Report Type: Report from Study
  Country: US (occurrence: US)
  Receive Date: 20210227
  Receipt Date: 20210227
  Transmission Date: 20210420
  Serious: No
  Sender: FDA-Public Use
  Company Number: NVSC2021US037487

PATIENT
  Sex: Female

DRUGS (1)
  1. COSENTYX [Suspect]
     Active Substance: SECUKINUMAB
     Indication: PSORIASIS
     Dosage: 300 MG, Q4W (ONCE A WEEK FOR FIVE WEEKS THEN EVERY FOUR WEEKS)
     Route: 058

REACTIONS (3)
  - Therapeutic product effect incomplete [Unknown]
  - Contusion [Unknown]
  - Skin irritation [Unknown]
